FAERS Safety Report 7304083-0 (Version None)
Quarter: 2011Q1

REPORT INFORMATION
  Report Type: 
  Country: None (occurrence: None)
  Receive Date: 20110221
  Receipt Date: 20110214
  Transmission Date: 20110831
  Serious: Yes (Death, Hospitalization, Other)
  Sender: FDA-Public Use
  Company Number: PHHY2010US36864

PATIENT
  Sex: Female

DRUGS (1)
  1. GLEEVEC [Suspect]
     Indication: ACUTE LYMPHOCYTIC LEUKAEMIA
     Dosage: 400 MG, QD
     Route: 048
     Dates: start: 20091019, end: 20100507

REACTIONS (4)
  - FEBRILE NEUTROPENIA [None]
  - ACUTE LYMPHOCYTIC LEUKAEMIA [None]
  - NEOPLASM MALIGNANT [None]
  - LEUKAEMIA RECURRENT [None]
